FAERS Safety Report 12185445 (Version 1)
Quarter: 2016Q1

REPORT INFORMATION
  Report Type: Spontaneous
  Country: US (occurrence: US)
  Receive Date: 20160316
  Receipt Date: 20160316
  Transmission Date: 20160526
  Serious: Yes (Hospitalization)
  Sender: FDA-Public Use
  Company Number: US-PFIZER INC-2016152661

PATIENT
  Age: 36 Year
  Sex: Female

DRUGS (7)
  1. CORTISONE ACETATE. [Suspect]
     Active Substance: CORTISONE ACETATE
     Dosage: AT AN AVERAGE RATE OF 19.8 MG, DAILY
     Route: 048
     Dates: start: 19510702
  2. CORTISONE ACETATE. [Suspect]
     Active Substance: CORTISONE ACETATE
     Dosage: 25 MG, DAILY
     Route: 048
     Dates: start: 19510713
  3. TESTOSTERONE PROPIONATE. [Concomitant]
     Active Substance: TESTOSTERONE PROPIONATE
     Dosage: 25 MG, DAILY
     Dates: start: 19510726, end: 19510814
  4. CORTISONE ACETATE. [Suspect]
     Active Substance: CORTISONE ACETATE
     Indication: ADRENAL INSUFFICIENCY
     Dosage: 345 MG, UNK
     Route: 048
     Dates: start: 19510618, end: 19510623
  5. CORTISONE ACETATE. [Suspect]
     Active Substance: CORTISONE ACETATE
     Dosage: 100 MG, DAILY (FOR AT LEAST PART OF THE SUBSEQUENT 10-DAY PERIOD)
     Route: 048
  6. DOCA [Concomitant]
     Indication: ADRENAL INSUFFICIENCY
     Dosage: UNK
  7. CORTISONE ACETATE. [Suspect]
     Active Substance: CORTISONE ACETATE
     Dosage: UNK

REACTIONS (1)
  - Mental disorder [Recovered/Resolved]

NARRATIVE: CASE EVENT DATE: 19510721
